FAERS Safety Report 9072656 (Version 1)
Quarter: 2013Q1

REPORT INFORMATION
  Report Type: Report from Study
  Country: US (occurrence: US)
  Receive Date: 20130129
  Receipt Date: 20130129
  Transmission Date: 20140127
  Serious: No
  Sender: FDA-Public Use
  Company Number: US-ABBOTT-12P-163-0936129-00

PATIENT
  Age: 24 None
  Sex: Female

DRUGS (6)
  1. HUMIRA 40 MG/0.8 ML PEN [Suspect]
     Indication: ANKYLOSING SPONDYLITIS
     Route: 058
     Dates: start: 20120409
  2. HYDROCODONE [Concomitant]
     Indication: PAIN
     Dosage: 5/375MG PILL AS NEEDED
  3. TIZANIDINE [Concomitant]
     Indication: MUSCLE RELAXANT THERAPY
  4. TIZANIDINE [Concomitant]
     Indication: INSOMNIA
  5. DEPO SHOT [Concomitant]
     Indication: CONTRACEPTION
     Dosage: EVERY 3 MONTHS
  6. BIRTH CONTROL PILL [Concomitant]
     Indication: CONTRACEPTION

REACTIONS (3)
  - Drug dose omission [Unknown]
  - Injection site pain [Not Recovered/Not Resolved]
  - Injection site pain [Not Recovered/Not Resolved]
